FAERS Safety Report 9678069 (Version 1)
Quarter: 2013Q4

REPORT INFORMATION
  Report Type: Spontaneous
  Country: FR (occurrence: None)
  Receive Date: 20131106
  Receipt Date: 20131106
  Transmission Date: 20140711
  Serious: Yes (Other)
  Sender: FDA-Public Use
  Company Number: SYM-2013-12296

PATIENT
  Age: 89 Year
  Sex: Male

DRUGS (4)
  1. FLAGYL [Suspect]
     Indication: CHOLECYSTITIS ACUTE
     Dosage: 3 IN 1 D
     Route: 048
     Dates: start: 20130904, end: 20130909
  2. KARDEGIC [Suspect]
     Indication: PRODUCT USED FOR UNKNOWN INDICATION
     Route: 048
     Dates: end: 20130904
  3. CEFTRIAXONE [Suspect]
     Indication: CHOLECYSTITIS ACUTE
     Route: 042
     Dates: start: 20130904, end: 20130909
  4. PREVISCAN (FLUINDIONE) (FLUINDIONE) [Suspect]
     Indication: PRODUCT USED FOR UNKNOWN INDICATION
     Route: 048
     Dates: start: 20130910

REACTIONS (2)
  - International normalised ratio increased [None]
  - Anaemia [None]
